APPROVED DRUG PRODUCT: AMITRIPTYLINE HYDROCHLORIDE
Active Ingredient: AMITRIPTYLINE HYDROCHLORIDE
Strength: 25MG
Dosage Form/Route: TABLET;ORAL
Application: A088698 | Product #001
Applicant: PAR PHARMACEUTICAL INC
Approved: Sep 25, 1984 | RLD: No | RS: No | Type: DISCN